FAERS Safety Report 12957560 (Version 1)
Quarter: 2016Q4

REPORT INFORMATION
  Report Type: Spontaneous
  Country: GB (occurrence: GB)
  Receive Date: 20161118
  Receipt Date: 20161118
  Transmission Date: 20170207
  Serious: Yes (Hospitalization)
  Sender: FDA-Public Use
  Company Number: GB-CANTON LABORATORIES, LLC-1059771

PATIENT
  Age: 70 Year
  Sex: Male
  Weight: 103 kg

DRUGS (6)
  1. DOUBLEBASE (LIQUID PARAFIN, ISOPROPYL MYRISTATE) [Concomitant]
     Route: 061
  2. OMEPRAZOLE. [Concomitant]
     Active Substance: OMEPRAZOLE
     Dates: start: 20160614
  3. PREDNISOLONE. [Concomitant]
     Active Substance: PREDNISOLONE
     Dates: start: 20160616
  4. INFLUENZA VIRUS [Concomitant]
     Active Substance: INFLUENZA VIRUS VACCINE
     Dates: start: 20161022, end: 20161022
  5. NAPROSYN [Suspect]
     Active Substance: NAPROXEN
     Indication: PRODUCT USED FOR UNKNOWN INDICATION
     Route: 065
     Dates: start: 20161025
  6. THEICAL D3 (COLECALCIFEROL CONCENTRAT, CALCIUM CARBONATE) [Concomitant]
     Dates: start: 20160616

REACTIONS (3)
  - Cough [Unknown]
  - Fatigue [Unknown]
  - Dyspnoea [Recovering/Resolving]

NARRATIVE: CASE EVENT DATE: 20161025
